FAERS Safety Report 11500540 (Version 3)
Quarter: 2016Q1

REPORT INFORMATION
  Report Type: Spontaneous
  Country: US (occurrence: US)
  Receive Date: 20150914
  Receipt Date: 20160111
  Transmission Date: 20160525
  Serious: No
  Sender: FDA-Public Use
  Company Number: US-PFIZER INC-2015292170

PATIENT
  Age: 70 Year
  Sex: Female

DRUGS (2)
  1. IBRANCE [Suspect]
     Active Substance: PALBOCICLIB
     Dosage: 100 MG, UNK
  2. IBRANCE [Suspect]
     Active Substance: PALBOCICLIB
     Indication: BREAST CANCER
     Dosage: 125 MG, CYCLIC (21 DAYS ON/ 7DAYS OFF)
     Route: 048
     Dates: start: 20150813

REACTIONS (5)
  - Breast cancer [Unknown]
  - Abdominal distension [Recovered/Resolved]
  - Epistaxis [Recovered/Resolved]
  - Disease progression [Unknown]
  - Flatulence [Recovered/Resolved]
